FAERS Safety Report 18564610 (Version 1)
Quarter: 2020Q4

REPORT INFORMATION
  Report Type: Spontaneous
  Country: US (occurrence: US)
  Receive Date: 20201130
  Receipt Date: 20201130
  Transmission Date: 20210114
  Serious: No
  Sender: FDA-Public Use
  Company Number: None

PATIENT
  Age: 73 Year
  Sex: Male

DRUGS (1)
  1. TRAVOPROST. [Suspect]
     Active Substance: TRAVOPROST
     Indication: GLAUCOMA
     Route: 047

REACTIONS (4)
  - Product delivery mechanism issue [None]
  - Device difficult to use [None]
  - Intraocular pressure increased [None]
  - Therapeutic product effect incomplete [None]

NARRATIVE: CASE EVENT DATE: 20201102
